FAERS Safety Report 15322040 (Version 3)
Quarter: 2022Q2

REPORT INFORMATION
  Report Type: Spontaneous
  Country: TW (occurrence: TW)
  Receive Date: 20180827
  Receipt Date: 20220608
  Transmission Date: 20220721
  Serious: Yes (Hospitalization, Other)
  Sender: FDA-Public Use
  Company Number: TW-MLMSERVICE-20180816-1338641-1

PATIENT
  Age: 87 Year
  Sex: Female
  Weight: 68.5 kg

DRUGS (16)
  1. ALPRAZOLAM [Interacting]
     Active Substance: ALPRAZOLAM
     Indication: Panic disorder
     Dosage: 0.5 MG, 2X/DAY
  2. ALPRAZOLAM [Interacting]
     Active Substance: ALPRAZOLAM
     Indication: Major depression
  3. LIDOCAINE [Interacting]
     Active Substance: LIDOCAINE
     Indication: General anaesthesia
     Dosage: 50 MG, SINGLE
     Route: 042
  4. ESTAZOLAM [Interacting]
     Active Substance: ESTAZOLAM
     Indication: Major depression
     Dosage: 2 MG, UNK
  5. ESTAZOLAM [Interacting]
     Active Substance: ESTAZOLAM
     Indication: Panic disorder
  6. SEVOFLURANE [Interacting]
     Active Substance: SEVOFLURANE
     Indication: Maintenance of anaesthesia
     Dosage: UNK
  7. CISATRACURIUM [Interacting]
     Active Substance: CISATRACURIUM
     Indication: Endotracheal intubation
     Dosage: 10 MG, SINGLE
     Route: 042
  8. DESFLURANE [Interacting]
     Active Substance: DESFLURANE
     Indication: Maintenance of anaesthesia
     Dosage: UNK
  9. IMIPRAMINE [Interacting]
     Active Substance: IMIPRAMINE
     Indication: Panic disorder
     Dosage: 25 MG, 1X/DAY, (HS, LONG TERM TREATMENT)
  10. IMIPRAMINE [Interacting]
     Active Substance: IMIPRAMINE
     Indication: Major depression
  11. SEROQUEL [Interacting]
     Active Substance: QUETIAPINE FUMARATE
     Indication: Major depression
     Dosage: 50 MG, 1X/DAY, (HS)
  12. SEROQUEL [Interacting]
     Active Substance: QUETIAPINE FUMARATE
     Indication: Panic disorder
  13. PROPOFOL [Interacting]
     Active Substance: PROPOFOL
     Indication: General anaesthesia
     Dosage: 100 MG, SINGLE
     Route: 042
  14. FENTANYL [Interacting]
     Active Substance: FENTANYL
     Indication: General anaesthesia
     Dosage: 100 UG, SINGLE
     Route: 042
  15. OXYGEN [Concomitant]
     Active Substance: OXYGEN
     Dosage: UNK
  16. PROPRANOLOL [Concomitant]
     Active Substance: PROPRANOLOL HYDROCHLORIDE
     Indication: Hypertension
     Dosage: 10 MG, 2X/DAY, (HYPERTENSION WAS UNDER CONTROL WITH PROPRANOLOL 10 MG BID TREATMENT FOR 10 YEARS)

REACTIONS (3)
  - Procedural hypotension [Recovered/Resolved]
  - Bradycardia [Recovered/Resolved]
  - Drug interaction [Recovered/Resolved]
